FAERS Safety Report 11697214 (Version 1)
Quarter: 2015Q4

REPORT INFORMATION
  Report Type: Spontaneous
  Country: MX (occurrence: MX)
  Receive Date: 20151104
  Receipt Date: 20151104
  Transmission Date: 20160304
  Serious: Yes (Death)
  Sender: FDA-Public Use
  Company Number: MX-ABBVIE-15K-107-1492864-00

PATIENT
  Sex: Male

DRUGS (7)
  1. HUMIRA [Suspect]
     Active Substance: ADALIMUMAB
     Dosage: MAINTENANCE TREATMENT
     Route: 058
     Dates: start: 2015
  2. AZATHIOPRINE. [Concomitant]
     Active Substance: AZATHIOPRINE
     Dosage: TOGETHER WITH HUMIRA AND MESAZALINE
     Route: 048
  3. MESALAZINE [Concomitant]
     Active Substance: MESALAMINE
     Indication: CROHN^S DISEASE
     Dosage: STARTED BEFORE HUMIRA
  4. HUMIRA [Suspect]
     Active Substance: ADALIMUMAB
     Indication: CROHN^S DISEASE
     Dosage: INDUCTION DOSE, DAY 0
     Route: 058
     Dates: start: 201507, end: 201507
  5. HUMIRA [Suspect]
     Active Substance: ADALIMUMAB
     Dosage: TWO WEEKS AFTER INDUCTION DOSE
     Route: 058
     Dates: start: 2015, end: 2015
  6. AZATHIOPRINE. [Concomitant]
     Active Substance: AZATHIOPRINE
     Indication: CROHN^S DISEASE
     Dosage: STARTED BEFORE HUMIRA
  7. MESALAZINE [Concomitant]
     Active Substance: MESALAMINE
     Dosage: TOGETHER WITH HUMIRA AND AZATHIOPRINE
     Route: 048

REACTIONS (4)
  - Drug resistance [Unknown]
  - Decreased appetite [Fatal]
  - Weight decreased [Fatal]
  - Drug ineffective [Fatal]

NARRATIVE: CASE EVENT DATE: 2015
